FAERS Safety Report 4338208-6 (Version None)
Quarter: 2004Q2

REPORT INFORMATION
  Report Type: 
  Country: None (occurrence: None)
  Receive Date: 20040407
  Receipt Date: 20040324
  Transmission Date: 20050107
  Serious: Yes (Other)
  Sender: FDA-Public Use
  Company Number: JP-JNJFOC-20040306004

PATIENT
  Age: 21 Year
  Sex: Male

DRUGS (4)
  1. ORTHOCLONE OKT3 [Suspect]
     Indication: KIDNEY TRANSPLANT REJECTION
     Dosage: INTRAVENOUS
     Route: 042
  2. TACROLIMUS (TACROLIMUS) [Concomitant]
  3. MYCOPHENOLATE MOFETIL (MYCOPHENOLATE MOFETIL) [Concomitant]
  4. METHYLPREDNISOLONE [Concomitant]

REACTIONS (2)
  - CYTOMEGALOVIRUS INFECTION [None]
  - NEPHROPATHY TOXIC [None]
